FAERS Safety Report 4942599-2 (Version None)
Quarter: 2006Q1

REPORT INFORMATION
  Report Type: 
  Country: None (occurrence: None)
  Receive Date: 20060310
  Receipt Date: 20060303
  Transmission Date: 20060701
  Serious: Yes (Hospitalization, Other)
  Sender: FDA-Public Use
  Company Number: 2006AL000613

PATIENT
  Age: 32 Year
  Sex: Female
  Weight: 60 kg

DRUGS (14)
  1. METOCLOPRAMIDE [Suspect]
  2. CYCLOSPORINE [Concomitant]
  3. PREDNISONE [Concomitant]
  4. ASPIRIN [Concomitant]
  5. ONDANSETRON [Concomitant]
  6. DAPSONE [Concomitant]
  7. PAROXETINE HCL [Concomitant]
  8. AMITRIPTYLINE HCL [Concomitant]
  9. NORTRIPTYLINE HCL [Concomitant]
  10. GABAPENTIN [Concomitant]
  11. SIROLIMUS [Concomitant]
  12. CLOTRIMAZOLE [Concomitant]
  13. LANSORPRAZOLE [Concomitant]
  14. ALENDRONATE SODIUM [Concomitant]

REACTIONS (3)
  - CYANOSIS [None]
  - METHAEMOGLOBINAEMIA [None]
  - OXYGEN SATURATION DECREASED [None]
